FAERS Safety Report 9376037 (Version 1)
Quarter: 2013Q2

REPORT INFORMATION
  Report Type: Spontaneous
  Country: DE (occurrence: DE)
  Receive Date: 20130629
  Receipt Date: 20130629
  Transmission Date: 20140414
  Serious: Yes (Congenital Anomaly, Other)
  Sender: FDA-Public Use
  Company Number: DE-MERCK-1306DEU014221

PATIENT
  Sex: Female
  Weight: 2.37 kg

DRUGS (4)
  1. MIRTAZAPINE [Suspect]
     Indication: DEPRESSION
     Dosage: 0.5 MG, QD
     Route: 064
  2. BISOPROLOL [Suspect]
     Indication: HYPERTENSION
     Dosage: 1 MG, QD, REPORTED AS 1 (MG/D)/2 X0.5 MG/D
     Route: 064
  3. METOPROLOL [Suspect]
     Indication: HYPERTENSION
     Dosage: 47.5 MG, QD
     Route: 064
  4. FOLIC ACID [Concomitant]
     Indication: PROPHYLAXIS OF NEURAL TUBE DEFECT
     Dosage: 0.4 MG/D, UNK
     Route: 064

REACTIONS (3)
  - Renal aplasia [Not Recovered/Not Resolved]
  - Low birth weight baby [Unknown]
  - Congenital hydronephrosis [Unknown]
